FAERS Safety Report 14683383 (Version 2)
Quarter: 2020Q4

REPORT INFORMATION
  Report Type: Spontaneous
  Country: US (occurrence: US)
  Receive Date: 20180327
  Receipt Date: 20201202
  Transmission Date: 20210113
  Serious: No
  Sender: FDA-Public Use
  Company Number: US-PFIZER INC-2018090105

PATIENT
  Age: 71 Year
  Sex: Female

DRUGS (1)
  1. XELJANZ [Suspect]
     Active Substance: TOFACITINIB CITRATE
     Indication: LARGE GRANULAR LYMPHOCYTOSIS
     Dosage: 5 MG, 2X/DAY
     Route: 048

REACTIONS (2)
  - Off label use [Unknown]
  - Malaise [Unknown]
